FAERS Safety Report 5818643-7 (Version None)
Quarter: 2008Q3

REPORT INFORMATION
  Report Type: 
  Country: None (occurrence: None)
  Receive Date: 20080717
  Receipt Date: 20080717
  Transmission Date: 20090109
  Serious: Yes (Life-Threatening)
  Sender: FDA-Public Use
  Company Number: None

PATIENT
  Sex: Female
  Weight: 58.9676 kg

DRUGS (2)
  1. DILAUDID [Suspect]
     Dosage: 4 MG 1 A DAY
  2. DETROL LA [Suspect]
     Dates: start: 20060616

REACTIONS (2)
  - DYSPNOEA [None]
  - MUSCLE SPASMS [None]
